FAERS Safety Report 6417640-0 (Version None)
Quarter: 2009Q4

REPORT INFORMATION
  Report Type: 
  Country: None (occurrence: None)
  Receive Date: 20091026
  Receipt Date: 20091013
  Transmission Date: 20100525
  Serious: Yes (Other)
  Sender: FDA-Public Use
  Company Number: ADR36922009

PATIENT
  Sex: Male

DRUGS (6)
  1. SIMVASTATIN [Suspect]
     Dosage: 40 MG
     Route: 048
     Dates: start: 20070501, end: 20070701
  2. ROSUVASTATIN [Concomitant]
  3. ASPIRIN [Concomitant]
  4. BISOPROLOL [Concomitant]
  5. CLOPIDOGREL [Concomitant]
  6. RAMIPRIL [Concomitant]

REACTIONS (3)
  - FATIGUE [None]
  - MALAISE [None]
  - NAUSEA [None]
